FAERS Safety Report 7466054 (Version 7)
Quarter: 2015Q1

REPORT INFORMATION
  Report Type: Report from Study
  Country: US (occurrence: US)
  Receive Date: 20100712
  Receipt Date: 20150305
  Transmission Date: 20150721
  Serious: Yes (Hospitalization)
  Sender: FDA-Public Use
  Company Number: US-ROCHE-713536

PATIENT
  Age: 68 Year
  Sex: Female
  Weight: 77.1 kg

DRUGS (14)
  1. DECADRON [Concomitant]
     Active Substance: DEXAMETHASONE
     Dosage: DOSE INCREASED FROM 2 MG BID TO 2 MG TID
     Route: 065
  2. ONDANSETRON [Concomitant]
     Active Substance: ONDANSETRON
     Route: 065
  3. INSULIN [Concomitant]
     Active Substance: INSULIN NOS
     Indication: HYPERGLYCAEMIA
     Dosage: DOSE: 10 U, ROUTE: SQ, FREQUENCY: AT BEDTIME
     Route: 065
  4. BEVACIZUMAB [Suspect]
     Active Substance: BEVACIZUMAB
     Route: 042
     Dates: start: 20100316, end: 20100608
  5. KEPPRA [Concomitant]
     Active Substance: LEVETIRACETAM
     Dosage: DOSE INCREASED FROM 1000 MG BID TO 1500 BID
     Route: 065
  6. ACTOS [Concomitant]
     Active Substance: PIOGLITAZONE HYDROCHLORIDE
     Indication: HYPERGLYCAEMIA
     Dosage: FREQUENCY: EVERYDAY
     Route: 048
  7. TEMOZOLOMIDE. [Suspect]
     Active Substance: TEMOZOLOMIDE
     Indication: GLIOBLASTOMA MULTIFORME
     Route: 048
     Dates: start: 20090325
  8. TEMOZOLOMIDE. [Suspect]
     Active Substance: TEMOZOLOMIDE
     Route: 048
     Dates: start: 20090724
  9. TEMOZOLOMIDE. [Suspect]
     Active Substance: TEMOZOLOMIDE
     Dosage: EVERY DAY X 5 DAYS, OF 15 DAYS
     Route: 048
     Dates: start: 20100316, end: 20100608
  10. TYLENOL [Concomitant]
     Active Substance: ACETAMINOPHEN
     Route: 065
  11. BEVACIZUMAB [Suspect]
     Active Substance: BEVACIZUMAB
     Indication: GLIOBLASTOMA MULTIFORME
     Dosage: EVERY 14 DAYS (DAY 1 AND 5/28 DAY CYCLE)
     Route: 042
  12. TEMOZOLOMIDE. [Suspect]
     Active Substance: TEMOZOLOMIDE
     Dosage: DAYS 1-5 + 15-19/28 DAY CYCLE
     Route: 048
  13. KEPPRA [Concomitant]
     Active Substance: LEVETIRACETAM
     Indication: SEIZURE
     Dosage: INCREASED FROM 750 MG TWICE DAILY TO 1000 MG TWICE DAILY
     Route: 065
  14. DECADRON [Concomitant]
     Active Substance: DEXAMETHASONE
     Indication: BRAIN OEDEMA
     Route: 065

REACTIONS (7)
  - Pulmonary embolism [Not Recovered/Not Resolved]
  - Seizure [Unknown]
  - Mental status changes [Unknown]
  - Fatigue [Not Recovered/Not Resolved]
  - Urinary tract infection [Recovered/Resolved]
  - Deep vein thrombosis [Not Recovered/Not Resolved]
  - Asthenia [Not Recovered/Not Resolved]

NARRATIVE: CASE EVENT DATE: 20100625
